FAERS Safety Report 11897917 (Version 2)
Quarter: 2016Q1

REPORT INFORMATION
  Report Type: Spontaneous
  Country: BH (occurrence: BH)
  Receive Date: 20160108
  Receipt Date: 20160125
  Transmission Date: 20160526
  Serious: Yes (Life-Threatening, Other)
  Sender: FDA-Public Use
  Company Number: BH-BRISTOL-MYERS SQUIBB COMPANY-BMS-2015-092538

PATIENT
  Age: 22 Year
  Sex: Female

DRUGS (1)
  1. METFORMIN HYDROCHLORIDE. [Suspect]
     Active Substance: METFORMIN HYDROCHLORIDE
     Indication: PRODUCT USED FOR UNKNOWN INDICATION
     Dosage: 50 G, UNK
     Route: 065

REACTIONS (4)
  - Overdose [Recovered/Resolved]
  - Rhabdomyolysis [Recovered/Resolved]
  - Haemodialysis [Recovered/Resolved]
  - Metabolic acidosis [Recovered/Resolved]
